FAERS Safety Report 25030727 (Version 3)
Quarter: 2025Q4

REPORT INFORMATION
  Report Type: Spontaneous
  Country: CH (occurrence: CH)
  Receive Date: 20250303
  Receipt Date: 20251024
  Transmission Date: 20260118
  Serious: Yes (Hospitalization)
  Sender: ASTELLAS
  Company Number: CH-ASTELLAS-2025-AER-012114

PATIENT
  Age: 82 Year
  Sex: Male

DRUGS (2)
  1. PADCEV [Suspect]
     Active Substance: ENFORTUMAB VEDOTIN-EJFV
     Indication: Transitional cell carcinoma
     Dosage: 2 CYCLES OF ENFORTUMAB VEDOTIN 1MG/KG AT 90 MG
     Route: 042
     Dates: start: 20241213, end: 20250110
  2. PEMBROLIZUMAB [Suspect]
     Active Substance: PEMBROLIZUMAB
     Indication: Transitional cell carcinoma
     Route: 065
     Dates: start: 20241213, end: 20250110

REACTIONS (3)
  - Hepatitis toxic [Not Recovered/Not Resolved]
  - Tubulointerstitial nephritis [Recovered/Resolved]
  - Immune-mediated nephritis [Recovered/Resolved]

NARRATIVE: CASE EVENT DATE: 20250127
